FAERS Safety Report 8964936 (Version 2)
Quarter: 2013Q1

REPORT INFORMATION
  Report Type: Report from Study
  Country: CH (occurrence: CH)
  Receive Date: 20121214
  Receipt Date: 20130104
  Transmission Date: 20140127
  Serious: Yes (Other)
  Sender: FDA-Public Use
  Company Number: CH-ROCHE-1168008

PATIENT
  Age: 36 Year
  Sex: Male
  Weight: 65 kg

DRUGS (9)
  1. PEG-INTERFERON ALFA 2A [Suspect]
     Indication: CHRONIC HEPATITIS C
     Route: 058
     Dates: start: 20120120
  2. RIBAVIRIN [Suspect]
     Indication: CHRONIC HEPATITIS C
     Route: 048
     Dates: start: 20120120
  3. UNSPECIFIED INGREDIENT [Suspect]
     Indication: CHRONIC HEPATITIS C
     Route: 048
     Dates: start: 20120120
  4. TEGRETOL [Concomitant]
     Indication: EPILEPSY
     Route: 065
  5. TEGRETOL [Concomitant]
     Route: 065
  6. TEGRETOL [Concomitant]
     Route: 065
     Dates: start: 20120120, end: 20120123
  7. TEGRETOL [Concomitant]
     Route: 065
     Dates: start: 20120123, end: 20120217
  8. TEGRETOL [Concomitant]
     Route: 065
     Dates: start: 20120217
  9. KEPPRA [Concomitant]
     Indication: EPILEPSY
     Route: 065

REACTIONS (1)
  - Epilepsy [Recovered/Resolved]
